FAERS Safety Report 8300588-4 (Version None)
Quarter: 2012Q2

REPORT INFORMATION
  Report Type: 
  Country: None (occurrence: None)
  Receive Date: 20120417
  Receipt Date: 20120403
  Transmission Date: 20120825
  Serious: Yes (Other)
  Sender: FDA-Public Use
  Company Number: 2012-00596

PATIENT
  Age: 55 Year
  Sex: Female
  Weight: 87.0906 kg

DRUGS (2)
  1. CEFDINIR [Suspect]
     Indication: STREPTOCOCCAL INFECTION
     Dosage: TWO CAPSULES ON 25/03/2012, ONE CAPSULE ON 26/03/2012 (300 MG), ORAL
     Route: 048
     Dates: start: 20120325, end: 20120327
  2. PENICILLIN (INJECTION) [Concomitant]

REACTIONS (5)
  - SWELLING [None]
  - PAIN [None]
  - CHILLS [None]
  - DIARRHOEA [None]
  - GASTROINTESTINAL DISORDER [None]
